FAERS Safety Report 19829917 (Version 2)
Quarter: 2021Q3

REPORT INFORMATION
  Report Type: Spontaneous
  Country: ES (occurrence: ES)
  Receive Date: 20210914
  Receipt Date: 20210930
  Transmission Date: 20211014
  Serious: Yes (Other)
  Sender: FDA-Public Use
  Company Number: ES-AMGEN-ESPSP2021139750

PATIENT
  Age: 66 Year
  Sex: Female

DRUGS (5)
  1. PROLIA [Suspect]
     Active Substance: DENOSUMAB
     Indication: PRODUCT USED FOR UNKNOWN INDICATION
     Dosage: UNK, Q6MO
     Route: 065
     Dates: start: 201403, end: 201803
  2. HIDROFEROL [Concomitant]
     Active Substance: CALCIFEDIOL
     Dosage: I VIAL EVERY MONTH , QMO
  3. VITAMIN D [COLECALCIFEROL] [Concomitant]
     Active Substance: CHOLECALCIFEROL
  4. IDEOS [Concomitant]
     Active Substance: CALCIUM CARBONATE\CHOLECALCIFEROL
     Dosage: 2 EVERY DAY
  5. CALCIUM [Concomitant]
     Active Substance: CALCIUM

REACTIONS (3)
  - Thoracic vertebral fracture [Unknown]
  - Lumbar vertebral fracture [Unknown]
  - Urinary tract infection [Unknown]

NARRATIVE: CASE EVENT DATE: 2019
